FAERS Safety Report 5087913-5 (Version None)
Quarter: 2006Q3

REPORT INFORMATION
  Report Type: 
  Country: None (occurrence: None)
  Receive Date: 20060821
  Receipt Date: 20060804
  Transmission Date: 20061208
  Serious: Yes (Hospitalization)
  Sender: FDA-Public Use
  Company Number: PAR_0730_2006

PATIENT
  Age: 70 Year
  Sex: Male
  Weight: 61.2356 kg

DRUGS (11)
  1. MEGESTROL ACETATE [Suspect]
     Indication: APPETITE DISORDER
     Dosage: 400 MG QDAY PO
     Route: 048
     Dates: start: 20060209, end: 20060501
  2. MEGESTROL ACETATE [Suspect]
     Indication: APPETITE DISORDER
     Dosage: 200 MG QDAY PO
     Route: 048
     Dates: start: 20060501
  3. MEGESTROL ACETATE [Suspect]
     Indication: APPETITE DISORDER
     Dosage: 2000 MG ONCE PO
     Route: 048
     Dates: start: 20060728, end: 20060728
  4. MEGESTROL ACETATE [Suspect]
     Indication: APPETITE DISORDER
     Dosage: 100 MG QDAY PO
     Route: 048
     Dates: start: 20060729, end: 20060801
  5. OXYCONTIN [Concomitant]
  6. LYRICA [Concomitant]
  7. TEGRETOL [Concomitant]
  8. PEPCID [Concomitant]
  9. ZANTAC [Concomitant]
  10. 2-3 UNSPECIFIED ANTIBIOTICS [Concomitant]
  11. STOOL SOFTENER [Concomitant]

REACTIONS (12)
  - ANOREXIA [None]
  - DIARRHOEA [None]
  - DRUG ADMINISTRATION ERROR [None]
  - FEELING ABNORMAL [None]
  - INFECTION [None]
  - MEDICATION ERROR [None]
  - OEDEMA PERIPHERAL [None]
  - ORAL INTAKE REDUCED [None]
  - PLATELET COUNT DECREASED [None]
  - PYREXIA [None]
  - SOMNOLENCE [None]
  - WEIGHT DECREASED [None]
